FAERS Safety Report 18769132 (Version 3)
Quarter: 2022Q3

REPORT INFORMATION
  Report Type: Spontaneous
  Country: JP (occurrence: JP)
  Receive Date: 20210121
  Receipt Date: 20220630
  Transmission Date: 20221027
  Serious: Yes (Other)
  Sender: FDA-Public Use
  Company Number: NVSJ2021JP000997

PATIENT
  Age: 43 Year
  Sex: Female

DRUGS (1)
  1. FINGOLIMOD HYDROCHLORIDE [Suspect]
     Active Substance: FINGOLIMOD HYDROCHLORIDE
     Indication: Secondary progressive multiple sclerosis
     Dosage: UNK MG
     Route: 048
     Dates: end: 20201125

REACTIONS (2)
  - Lymphocyte count decreased [Unknown]
  - Product use in unapproved indication [Unknown]
